FAERS Safety Report 8968867 (Version 1)
Quarter: 2012Q4

REPORT INFORMATION
  Report Type: 
  Country: US (occurrence: US)
  Receive Date: 20121218
  Receipt Date: 20121218
  Transmission Date: 20130627
  Serious: No
  Sender: FDA-Public Use
  Company Number: US-BRISTOL-MYERS SQUIBB COMPANY-16753790

PATIENT
  Sex: Male

DRUGS (3)
  1. ABILIFY [Suspect]
     Dosage: 5mg titrated to Abilify 10 mg,Dose increased to 10mg
  2. SEROQUEL [Suspect]
     Dosage: 1DF: 100 mg in the morning and 600 mg at night
  3. COGENTIN [Suspect]

REACTIONS (4)
  - Faecal incontinence [Unknown]
  - Frequent bowel movements [Unknown]
  - Dyspepsia [Unknown]
  - Abdominal pain [Unknown]
